FAERS Safety Report 6468581-4 (Version None)
Quarter: 2009Q4

REPORT INFORMATION
  Report Type: 
  Country: None (occurrence: None)
  Receive Date: 20091203
  Receipt Date: 20091124
  Transmission Date: 20100525
  Serious: Yes (Other)
  Sender: FDA-Public Use
  Company Number: GB-ROCHE-671096

PATIENT
  Age: 48 Year
  Sex: Female

DRUGS (5)
  1. TAMIFLU [Suspect]
     Indication: DRUG USE FOR UNKNOWN INDICATION
     Route: 065
  2. FLU VACCINE [Suspect]
     Indication: DRUG USE FOR UNKNOWN INDICATION
     Dosage: REPORTED DRUG NAME: SEASONAL FLU VACCINE; START DATE REPORTED AS OCTOBER 2009.
     Route: 065
     Dates: start: 20091001
  3. SULFASALAZINE [Concomitant]
     Dosage: REPORTED DRUG NAME: SULPHAZALAZINE.
  4. DICLOFENAC [Concomitant]
  5. RANITIDINE [Concomitant]
     Dosage: REPORTED DRUG NAME: RANATADINE.

REACTIONS (2)
  - RASH GENERALISED [None]
  - SWOLLEN TONGUE [None]
